FAERS Safety Report 5717678-2 (Version None)
Quarter: 2008Q2

REPORT INFORMATION
  Report Type: 
  Country: None (occurrence: None)
  Receive Date: 20080425
  Receipt Date: 20080416
  Transmission Date: 20081010
  Serious: Yes (Hospitalization)
  Sender: FDA-Public Use
  Company Number: FR-JNJFOC-20041001547

PATIENT
  Age: 32 Year
  Sex: Male
  Weight: 62 kg

DRUGS (4)
  1. REMICADE [Suspect]
     Indication: CROHN'S DISEASE
     Route: 042
  2. IMUREL [Suspect]
     Indication: CROHN'S DISEASE
     Route: 048
  3. PREDNISONE [Concomitant]
     Indication: CROHN'S DISEASE
     Route: 048
  4. ROWASA [Concomitant]
     Indication: CROHN'S DISEASE
     Route: 048

REACTIONS (2)
  - BASAL CELL CARCINOMA [None]
  - DRUG INTERACTION [None]
